FAERS Safety Report 8785193 (Version 1)
Quarter: 2012Q4

REPORT INFORMATION
  Report Type: 
  Country: US (occurrence: US)
  Receive Date: 20120914
  Receipt Date: 20120914
  Transmission Date: 20130627
  Serious: No
  Sender: FDA-Public Use
  Company Number: US-JNJFOC-20120900084

PATIENT
  Sex: Male
  Weight: 90.72 kg

DRUGS (6)
  1. FENTANYL TRANSDERMAL SYSTEM [Suspect]
     Indication: SPINAL FRACTURE
     Route: 062
  2. FENTANYL TRANSDERMAL SYSTEM [Suspect]
     Indication: SPINAL FRACTURE
     Route: 062
     Dates: start: 201208
  3. FENTANYL TRANSDERMAL SYSTEM [Suspect]
     Indication: RIB FRACTURE
     Route: 062
  4. FENTANYL TRANSDERMAL SYSTEM [Suspect]
     Indication: RIB FRACTURE
     Route: 062
     Dates: start: 201208
  5. FENTANYL TRANSDERMAL SYSTEM [Suspect]
     Indication: SPINAL FRACTURE
     Route: 062
  6. FENTANYL TRANSDERMAL SYSTEM [Suspect]
     Indication: SPINAL FRACTURE
     Route: 062
     Dates: start: 201208

REACTIONS (4)
  - Pain [Unknown]
  - Wrong technique in drug usage process [Recovered/Resolved]
  - Product quality issue [Unknown]
  - Drug dose omission [Unknown]
